FAERS Safety Report 14636833 (Version 1)
Quarter: 2018Q1

REPORT INFORMATION
  Report Type: Spontaneous
  Country: US (occurrence: US)
  Receive Date: 20180314
  Receipt Date: 20180314
  Transmission Date: 20180509
  Serious: No
  Sender: FDA-Public Use
  Company Number: US-ASTRAZENECA-2018SE31270

PATIENT
  Age: 32188 Day
  Sex: Male
  Weight: 81.6 kg

DRUGS (1)
  1. TUDORZA PRESSAIR [Suspect]
     Active Substance: ACLIDINIUM BROMIDE
     Indication: CHRONIC OBSTRUCTIVE PULMONARY DISEASE
     Route: 055
     Dates: start: 201712

REACTIONS (2)
  - Extra dose administered [Unknown]
  - Body height decreased [Unknown]

NARRATIVE: CASE EVENT DATE: 20180309
